FAERS Safety Report 9641885 (Version 1)
Quarter: 2013Q4

REPORT INFORMATION
  Report Type: Spontaneous
  Country: US (occurrence: US)
  Receive Date: 20131023
  Receipt Date: 20131023
  Transmission Date: 20140711
  Serious: Yes (Hospitalization, Other)
  Sender: FDA-Public Use
  Company Number: US-ENDO PHARMACEUTICALS INC.-RISP20130005

PATIENT
  Sex: Female

DRUGS (2)
  1. RISPERIDONE ORAL SOLUTION 1MG/ML [Suspect]
     Indication: DEPRESSION
     Dosage: UNK
     Route: 048
     Dates: start: 2004, end: 2013
  2. RISPERIDONE ORAL SOLUTION 1MG/ML [Suspect]
     Indication: MUSCLE SPASTICITY

REACTIONS (10)
  - Pneumonia staphylococcal [Unknown]
  - Urinary tract infection [Unknown]
  - Dyspnoea [Unknown]
  - Dehydration [Unknown]
  - Hepatic enzyme increased [Unknown]
  - Musculoskeletal stiffness [Unknown]
  - Muscle rigidity [Unknown]
  - Dyskinesia [Unknown]
  - Dysphagia [Unknown]
  - Tachycardia [Unknown]
